FAERS Safety Report 5251089-1 (Version None)
Quarter: 2007Q1

REPORT INFORMATION
  Report Type: 
  Country: None (occurrence: None)
  Receive Date: 20070228
  Receipt Date: 20060823
  Transmission Date: 20070707
  Serious: No
  Sender: FDA-Public Use
  Company Number: US-GLAXOSMITHKLINE-A0617831A

PATIENT
  Age: 50 Year
  Sex: Male

DRUGS (5)
  1. LAMICTAL [Suspect]
     Dosage: 200MG PER DAY
     Route: 048
     Dates: start: 20010101
  2. LEXAPRO [Concomitant]
  3. ESTRACE [Concomitant]
  4. ESTRATEST H.S. [Concomitant]
  5. PROMETRIUM [Concomitant]

REACTIONS (2)
  - BLOOD CREATININE INCREASED [None]
  - URINE ABNORMALITY [None]
